FAERS Safety Report 14659682 (Version 1)
Quarter: 2018Q1

REPORT INFORMATION
  Report Type: Report from Study
  Country: None (occurrence: PH)
  Receive Date: 20180320
  Receipt Date: 20180320
  Transmission Date: 20180509
  Serious: Yes (Hospitalization)
  Sender: FDA-Public Use
  Company Number: PH-ABBVIE-18P-128-2289526-00

PATIENT
  Age: 22 Year
  Sex: Male

DRUGS (4)
  1. VALPROIC ACID. [Suspect]
     Active Substance: VALPROIC ACID
     Indication: PSYCHOTHERAPY
     Dosage: 15 MG, UNK
     Route: 065
     Dates: start: 20171001
  2. CLOZAPINE. [Suspect]
     Active Substance: CLOZAPINE
     Indication: PSYCHOTHERAPY
     Dosage: HALF TABLET
     Route: 048
  3. ABILIFY [Suspect]
     Active Substance: ARIPIPRAZOLE
     Indication: PSYCHOTHERAPY
     Dosage: UNK, QD, UNK
     Route: 065
     Dates: start: 20171001
  4. ABILIFY [Suspect]
     Active Substance: ARIPIPRAZOLE
     Dosage: UNK, TID, UNKNOWN
     Route: 065
     Dates: end: 20180105

REACTIONS (5)
  - Staring [Recovered/Resolved]
  - Aphasia [Unknown]
  - Hypokinesia [Recovered/Resolved]
  - Hospitalisation [Recovered/Resolved]
  - Mental impairment [Unknown]

NARRATIVE: CASE EVENT DATE: 2017
